FAERS Safety Report 25668569 (Version 1)
Quarter: 2025Q3

REPORT INFORMATION
  Report Type: Spontaneous
  Country: US (occurrence: US)
  Receive Date: 20250812
  Receipt Date: 20250812
  Transmission Date: 20251021
  Serious: No
  Sender: BAXTER
  Company Number: US-BAXTER-2025BAX019504

PATIENT
  Age: 42 Year
  Sex: Female

DRUGS (1)
  1. LACTATED RINGERS SOLUTION [Suspect]
     Active Substance: CALCIUM CHLORIDE\POTASSIUM CHLORIDE\SODIUM CHLORIDE\SODIUM LACTATE
     Route: 042

REACTIONS (3)
  - Burning sensation [Unknown]
  - Tachycardia [Unknown]
  - Chest pain [Unknown]
